FAERS Safety Report 4480774-4 (Version None)
Quarter: 2004Q4

REPORT INFORMATION
  Report Type: 
  Country: None (occurrence: None)
  Receive Date: 20041019
  Receipt Date: 20041008
  Transmission Date: 20050328
  Serious: Yes (Other)
  Sender: FDA-Public Use
  Company Number: US-SHR-03-016964

PATIENT
  Age: 37 Year
  Sex: Female
  Weight: 132.9 kg

DRUGS (3)
  1. MIRENA [Suspect]
     Indication: MENORRHAGIA
     Dosage: 20 UG/DAY, CONT, INTRA-UTERINE
     Route: 015
     Dates: start: 20030701
  2. AVALIDE [Concomitant]
  3. SYNTHROID [Concomitant]

REACTIONS (4)
  - MASS [None]
  - OPTIC NERVE DISORDER [None]
  - PAPILLOEDEMA [None]
  - VISION BLURRED [None]
